FAERS Safety Report 10551664 (Version 1)
Quarter: 2014Q4

REPORT INFORMATION
  Report Type: Spontaneous
  Country: US (occurrence: None)
  Receive Date: 20141020
  Receipt Date: 20141020
  Transmission Date: 20150529
  Serious: No
  Sender: FDA-Public Use
  Company Number: AEGR000640

PATIENT
  Age: 55 Year
  Sex: Female
  Weight: 81.6 kg

DRUGS (2)
  1. VITAMIN E [Suspect]
     Active Substance: .ALPHA.-TOCOPHEROL
  2. JUXTAPID [Suspect]
     Active Substance: LOMITAPIDE MESYLATE
     Indication: TYPE IIA HYPERLIPIDAEMIA
     Route: 048
     Dates: start: 20140606, end: 20140708

REACTIONS (3)
  - Diarrhoea [None]
  - Abdominal pain [None]
  - Gastrointestinal disorder [None]

NARRATIVE: CASE EVENT DATE: 20140616
